FAERS Safety Report 18753435 (Version 1)
Quarter: 2021Q1

REPORT INFORMATION
  Report Type: Report from Study
  Country: US (occurrence: US)
  Receive Date: 20210118
  Receipt Date: 20210118
  Transmission Date: 20210419
  Serious: Yes (Hospitalization)
  Sender: FDA-Public Use
  Company Number: US-TAKEDA-US201401399

PATIENT
  Age: 6 Year
  Sex: Male

DRUGS (2)
  1. IDURSULFASE [Suspect]
     Active Substance: IDURSULFASE
     Indication: MUCOPOLYSACCHARIDOSIS II
     Dosage: 18 MILLIGRAM, 1/WEEK
     Route: 041
     Dates: start: 20110912
  2. IDURSULFASE [Suspect]
     Active Substance: IDURSULFASE
     Dosage: UNK,1/WEEK
     Route: 042
     Dates: start: 20110912

REACTIONS (3)
  - Nasal congestion [Recovered/Resolved]
  - Pyrexia [Recovered/Resolved]
  - Nasopharyngitis [Recovering/Resolving]

NARRATIVE: CASE EVENT DATE: 20140324
